FAERS Safety Report 24305689 (Version 1)
Quarter: 2024Q3

REPORT INFORMATION
  Report Type: Spontaneous
  Country: PL (occurrence: PL)
  Receive Date: 20240911
  Receipt Date: 20240911
  Transmission Date: 20241016
  Serious: Yes (Other)
  Sender: ROCHE
  Company Number: PL-ROCHE-10000072843

PATIENT

DRUGS (1)
  1. AVASTIN [Suspect]
     Active Substance: BEVACIZUMAB
     Indication: Diabetic retinal oedema
     Dosage: 1.25 MG/0.1 ML
     Route: 050
     Dates: start: 20240821

REACTIONS (2)
  - Non-infectious endophthalmitis [Unknown]
  - Toxicity to various agents [Unknown]
